FAERS Safety Report 12842175 (Version 2)
Quarter: 2016Q4

REPORT INFORMATION
  Report Type: Spontaneous
  Country: JP (occurrence: JP)
  Receive Date: 20161013
  Receipt Date: 20161101
  Transmission Date: 20170207
  Serious: Yes (Other)
  Sender: FDA-Public Use
  Company Number: JP-009507513-1610JPN003921

PATIENT
  Age: 61 Year
  Sex: Male

DRUGS (2)
  1. TEMODAL [Suspect]
     Active Substance: TEMOZOLOMIDE
     Indication: BRAIN NEOPLASM
     Dosage: 5 DAYS FOLLOWED BY A 23 DAYS INTERVAL, REPEATED THIS SCHEDULE
     Route: 048
  2. TEMODAL [Suspect]
     Active Substance: TEMOZOLOMIDE
     Dosage: 7 DAYS ADMINISTRATION AND A 14 DAYS INTERVAL
     Route: 048

REACTIONS (1)
  - Disease progression [Unknown]
